FAERS Safety Report 7948123-4 (Version None)
Quarter: 2011Q4

REPORT INFORMATION
  Report Type: 
  Country: None (occurrence: None)
  Receive Date: 20111125
  Receipt Date: 20111108
  Transmission Date: 20120403
  Serious: Yes (Death)
  Sender: FDA-Public Use
  Company Number: FK201102672

PATIENT
  Age: 43 Year
  Sex: Female

DRUGS (16)
  1. DOCETAXEL [Suspect]
     Indication: BREAST CANCER
  2. CARBOPLATIN [Suspect]
     Indication: BREAST CANCER
  3. FULVESTRANT [Suspect]
     Indication: BREAST CANCER
  4. MEGESTROL ACETATE [Suspect]
  5. FUROSEMIDE [Concomitant]
  6. CAPECITABINE [Suspect]
     Indication: BREAST CANCER
  7. CYCLOPHOSPHAMIDE [Suspect]
     Indication: BREAST CANCER
  8. PACLITAXEL [Suspect]
     Indication: BREAST CANCER
  9. DOXORUBICIN HCL [Suspect]
     Indication: BREAST CANCER
  10. BEVACIZUMAB (BEVACIZUMAB) (BEVACIZUMAB) [Suspect]
     Indication: BREAST CANCER
  11. ARIMIDEX [Suspect]
     Indication: BREAST CANCER
  12. VINORELBINE [Suspect]
     Indication: BREAST CANCER
  13. GEMCITABINE [Suspect]
     Indication: BREAST CANCER
  14. IRINOTECAN HCL [Suspect]
     Indication: BREAST CANCER
  15. EXEMESTANE [Suspect]
     Indication: BREAST CANCER
  16. TAMOXIFEN CITRATE [Suspect]
     Indication: BREAST CANCER

REACTIONS (2)
  - HEPATIC FAILURE [None]
  - CARDIAC CIRRHOSIS [None]
